FAERS Safety Report 8543453-X (Version None)
Quarter: 2012Q3

REPORT INFORMATION
  Report Type: 
  Country: None (occurrence: None)
  Receive Date: 20120727
  Receipt Date: 20120719
  Transmission Date: 20120928
  Serious: Yes (Hospitalization)
  Sender: FDA-Public Use
  Company Number: US-UCBSA-028175

PATIENT
  Age: 42 Year
  Sex: Male
  Weight: 54 kg

DRUGS (8)
  1. CIMZIA [Suspect]
     Indication: CROHN'S DISEASE
     Dosage: 1 DOSE
     Route: 058
     Dates: start: 20100907
  2. FLAGYL [Concomitant]
     Dates: start: 20090728, end: 20090901
  3. FLAGYL [Concomitant]
     Dosage: 500 MG
  4. PREDNISONE [Concomitant]
     Dates: start: 20090728, end: 20090901
  5. PREDNISONE [Concomitant]
     Dosage: 30 MG A DAY
  6. MULTI-VITAMINS [Concomitant]
  7. CIPROFLOXACIN HCL [Concomitant]
     Dosage: 500 MG
  8. OXYCODONE HCL [Concomitant]
     Dosage: 5 MG TABLET EVERY 2 HOUR

REACTIONS (3)
  - CROHN'S DISEASE [None]
  - RECTAL HAEMORRHAGE [None]
  - PERIRECTAL ABSCESS [None]
